FAERS Safety Report 7040624-9 (Version None)
Quarter: 2010Q4

REPORT INFORMATION
  Report Type: 
  Country: None (occurrence: None)
  Receive Date: 20101006
  Receipt Date: 20100924
  Transmission Date: 20110411
  Serious: Yes (Other)
  Sender: FDA-Public Use
  Company Number: DSA_44017_2010

PATIENT
  Sex: Female

DRUGS (4)
  1. WELLBUTRIN XL [Suspect]
     Indication: PRODUCT USED FOR UNKNOWN INDICATION
     Dosage: (100 MG QD ORAL) ; (300 MG QD ORAL)
     Route: 048
     Dates: start: 20100821, end: 20100827
  2. WELLBUTRIN XL [Suspect]
     Indication: PRODUCT USED FOR UNKNOWN INDICATION
     Dosage: (100 MG QD ORAL) ; (300 MG QD ORAL)
     Route: 048
     Dates: start: 20100828, end: 20100913
  3. LEXAPRO [Concomitant]
  4. SYNTHROID [Concomitant]

REACTIONS (1)
  - HYPERSENSITIVITY [None]
